FAERS Safety Report 9863335 (Version 4)
Quarter: 2019Q2

REPORT INFORMATION
  Report Type: Spontaneous
  Country: US (occurrence: US)
  Receive Date: 20140203
  Receipt Date: 20190412
  Transmission Date: 20190711
  Serious: Yes (Other)
  Sender: FDA-Public Use
  Company Number: US-PFIZER INC-2014026149

PATIENT
  Age: 68 Year
  Sex: Female

DRUGS (13)
  1. CELEBREX [Suspect]
     Active Substance: CELECOXIB
     Dosage: UNK
  2. TRAMADOL. [Suspect]
     Active Substance: TRAMADOL
     Dosage: UNK
  3. METHOTREXATE SODIUM. [Suspect]
     Active Substance: METHOTREXATE SODIUM
     Dosage: UNK
  4. BEXTRA [Suspect]
     Active Substance: VALDECOXIB
     Dosage: UNK
  5. TORADOL [Suspect]
     Active Substance: KETOROLAC TROMETHAMINE
     Dosage: UNK
  6. PLAQUENIL [Suspect]
     Active Substance: HYDROXYCHLOROQUINE SULFATE
     Dosage: UNK
  7. DEPO-MEDROL [Suspect]
     Active Substance: METHYLPREDNISOLONE ACETATE
     Dosage: UNK
  8. SOLU-MEDROL [Suspect]
     Active Substance: METHYLPREDNISOLONE SODIUM SUCCINATE
     Dosage: UNK
  9. VIOXX [Suspect]
     Active Substance: ROFECOXIB
     Dosage: UNK
  10. PREDNISONE. [Suspect]
     Active Substance: PREDNISONE
     Dosage: UNK
  11. ZYRTEC [Suspect]
     Active Substance: CETIRIZINE HYDROCHLORIDE
     Dosage: UNK
  12. ARAVA [Suspect]
     Active Substance: LEFLUNOMIDE
     Dosage: UNK
  13. BIAXIN [Suspect]
     Active Substance: CLARITHROMYCIN
     Dosage: UNK

REACTIONS (1)
  - Drug hypersensitivity [Not Recovered/Not Resolved]

NARRATIVE: CASE EVENT DATE: 20130424
